FAERS Safety Report 9778741 (Version 2)
Quarter: 2013Q4

REPORT INFORMATION
  Report Type: Spontaneous
  Country: US (occurrence: US)
  Receive Date: 20131223
  Receipt Date: 20131223
  Transmission Date: 20140711
  Serious: No
  Sender: FDA-Public Use
  Company Number: US-GILEAD-2010-0026742

PATIENT
  Age: 66 Year
  Sex: Male

DRUGS (10)
  1. ATRIPLA [Suspect]
     Indication: HIV INFECTION
     Dates: start: 20090709, end: 20090711
  2. TRUVADA [Suspect]
     Indication: HIV INFECTION
     Dates: start: 20090711
  3. NORVIR [Concomitant]
     Indication: HIV INFECTION
     Dates: start: 20090711
  4. LEXIVA [Concomitant]
     Indication: HIV INFECTION
     Dates: start: 20090711
  5. METFORMIN [Concomitant]
     Indication: DIABETES MELLITUS
     Dates: start: 1998
  6. GLIMEPIRIDE [Concomitant]
     Indication: DIABETES MELLITUS
     Dates: start: 1998
  7. METOPROLOL [Concomitant]
     Indication: CORONARY ARTERY DISEASE
     Dates: start: 1998
  8. LIPITOR [Concomitant]
     Indication: HYPERLIPIDAEMIA
     Dates: start: 1998
  9. TRICOR [Concomitant]
     Indication: HYPERLIPIDAEMIA
     Dates: start: 1998
  10. ASPIRIN [Concomitant]
     Indication: CORONARY ARTERY DISEASE
     Dates: start: 1998

REACTIONS (3)
  - Sensory disturbance [Not Recovered/Not Resolved]
  - Dizziness [Recovered/Resolved]
  - Diabetic neuropathy [Not Recovered/Not Resolved]
